FAERS Safety Report 4902359-5 (Version None)
Quarter: 2006Q1

REPORT INFORMATION
  Report Type: 
  Country: None (occurrence: None)
  Receive Date: 20060207
  Receipt Date: 20060127
  Transmission Date: 20060701
  Serious: Yes (Other)
  Sender: FDA-Public Use
  Company Number: PHBS2006CN01451

PATIENT
  Age: 8 Year
  Sex: Female

DRUGS (2)
  1. TEGRETOL [Suspect]
     Indication: EPILEPSY
     Dosage: 200 MG/DAY
     Route: 048
     Dates: start: 20030101
  2. TEGRETOL [Suspect]
     Dosage: 100 MG, QD
     Route: 048
     Dates: start: 20050101

REACTIONS (1)
  - GLAUCOMA [None]
